FAERS Safety Report 6079146-0 (Version None)
Quarter: 2009Q1

REPORT INFORMATION
  Report Type: 
  Country: None (occurrence: None)
  Receive Date: 20090216
  Receipt Date: 20090210
  Transmission Date: 20090719
  Serious: Yes (Other)
  Sender: FDA-Public Use
  Company Number: A0767697A

PATIENT
  Age: 83 Year
  Sex: Female

DRUGS (7)
  1. ARIXTRA [Suspect]
     Dosage: 2.5MG PER DAY
     Route: 058
     Dates: start: 20081101
  2. ATENOLOL [Concomitant]
  3. FUROSEMIDE [Concomitant]
  4. SYNTHROID [Concomitant]
  5. TRACLEER [Concomitant]
  6. REVATIO [Concomitant]
  7. NEXIUM [Concomitant]

REACTIONS (9)
  - CALCINOSIS [None]
  - CALCIPHYLAXIS [None]
  - CONDITION AGGRAVATED [None]
  - HAEMORRHAGE [None]
  - IMPAIRED HEALING [None]
  - LOCAL SWELLING [None]
  - PAIN IN EXTREMITY [None]
  - VARICOSE VEIN RUPTURED [None]
  - WOUND INFECTION [None]
